FAERS Safety Report 7559493-3 (Version None)
Quarter: 2011Q2

REPORT INFORMATION
  Report Type: 
  Country: None (occurrence: None)
  Receive Date: 20110621
  Receipt Date: 20110610
  Transmission Date: 20111010
  Serious: Yes (Other)
  Sender: FDA-Public Use
  Company Number: FI-NOVOPROD-329996

PATIENT

DRUGS (2)
  1. PROTAPHANE [Suspect]
     Indication: GESTATIONAL DIABETES
  2. HUMALOG [Suspect]
     Indication: GESTATIONAL DIABETES

REACTIONS (1)
  - PREMATURE BABY [None]
